FAERS Safety Report 9542938 (Version 7)
Quarter: 2015Q2

REPORT INFORMATION
  Report Type: Report from Study
  Country: TR (occurrence: TR)
  Receive Date: 20130923
  Receipt Date: 20150525
  Transmission Date: 20150821
  Serious: Yes (Life-Threatening, Hospitalization)
  Sender: FDA-Public Use
  Company Number: TR-TEVA-433672USA

PATIENT
  Age: 69 Year
  Sex: Male
  Weight: 68.5 kg

DRUGS (21)
  1. RITUXIMAB [Suspect]
     Active Substance: RITUXIMAB
     Indication: CHRONIC LYMPHOCYTIC LEUKAEMIA
     Route: 042
     Dates: start: 20130904
  2. IBRUTINIB/PLACEBO [Suspect]
     Active Substance: IBRUTINIB
     Indication: CHRONIC LYMPHOCYTIC LEUKAEMIA
     Dosage: 420 MILLIGRAM DAILY;
     Route: 048
     Dates: start: 20130905
  3. SYSTRAL [Concomitant]
     Indication: HYPERSENSITIVITY
     Route: 042
     Dates: start: 20130904
  4. URIKOLIZ [Concomitant]
     Active Substance: ALLOPURINOL
     Indication: PREMEDICATION
     Route: 048
     Dates: start: 20130904
  5. BENDAMUSTINE [Suspect]
     Active Substance: BENDAMUSTINE
     Indication: CHRONIC LYMPHOCYTIC LEUKAEMIA
     Route: 042
     Dates: start: 20130905
  6. IBRUTINIB/PLACEBO [Suspect]
     Active Substance: IBRUTINIB
     Indication: LYMPHOCYTIC LYMPHOMA
     Dosage: 420 MILLIGRAM DAILY;
     Route: 048
     Dates: start: 20130910
  7. DIAZEM [Concomitant]
     Indication: PREMEDICATION
     Route: 048
     Dates: start: 20130904
  8. FAMOTIDINE. [Concomitant]
     Active Substance: FAMOTIDINE
     Indication: PREMEDICATION
     Route: 048
     Dates: start: 20130904
  9. BENEXOL [Concomitant]
     Active Substance: CYANOCOBALAMIN\PYRIDOXINE\THIAMINE
     Indication: NUTRITIONAL SUPPLEMENTATION
     Route: 048
  10. VASOSERC [Concomitant]
     Indication: VERTIGO
     Route: 048
  11. PREDNOL [Concomitant]
     Active Substance: METHYLPREDNISOLONE
     Indication: HYPERSENSITIVITY
     Route: 042
     Dates: start: 20130904
  12. PAROL [Concomitant]
     Active Substance: ACETAMINOPHEN
     Indication: HYPERSENSITIVITY
     Route: 048
     Dates: start: 20130904
  13. DEKORT [Concomitant]
     Active Substance: DEXAMETHASONE
     Indication: PREMEDICATION
     Route: 042
     Dates: start: 20130904
  14. PRILOSEC [Concomitant]
     Active Substance: OMEPRAZOLE MAGNESIUM
     Indication: PREMEDICATION
     Dosage: 20 ML DAILY;
     Dates: start: 20130813
  15. ALYSE A [Concomitant]
     Indication: BURNING SENSATION
     Route: 048
     Dates: end: 20131219
  16. URIKOLIZ [Concomitant]
     Active Substance: ALLOPURINOL
     Dates: start: 20130911
  17. SYSTRAL [Concomitant]
     Indication: PREMEDICATION
  18. PAROL [Concomitant]
     Active Substance: ACETAMINOPHEN
     Indication: HYPERTENSION
     Dosage: 1000 MILLIGRAM DAILY;
     Dates: start: 20131002
  19. BENDAMUSTINE [Suspect]
     Active Substance: BENDAMUSTINE
     Indication: LYMPHOCYTIC LYMPHOMA
     Route: 042
     Dates: start: 20130906
  20. GRANISETRON [Concomitant]
     Active Substance: GRANISETRON
     Indication: PREMEDICATION
     Route: 042
     Dates: start: 20130905, end: 20130906
  21. RITUXIMAB [Suspect]
     Active Substance: RITUXIMAB
     Indication: LYMPHOCYTIC LYMPHOMA

REACTIONS (2)
  - Urate nephropathy [Recovered/Resolved]
  - Tumour lysis syndrome [Recovered/Resolved]

NARRATIVE: CASE EVENT DATE: 20130910
